FAERS Safety Report 7947073-7 (Version None)
Quarter: 2011Q4

REPORT INFORMATION
  Report Type: 
  Country: None (occurrence: None)
  Receive Date: 20111129
  Receipt Date: 20110909
  Transmission Date: 20120403
  Serious: No
  Sender: FDA-Public Use
  Company Number: US-ASTRAZENECA-2011SE54247

PATIENT
  Age: 70 Year
  Sex: Male

DRUGS (1)
  1. VIMOVO [Suspect]
     Indication: OSTEOARTHRITIS
     Route: 048

REACTIONS (1)
  - SOMNOLENCE [None]
